FAERS Safety Report 23701573 (Version 1)
Quarter: 2024Q2

REPORT INFORMATION
  Report Type: Spontaneous
  Country: US (occurrence: US)
  Receive Date: 20240403
  Receipt Date: 20240403
  Transmission Date: 20240715
  Serious: No
  Sender: FDA-Public Use
  Company Number: US-APOTEX-2024AP004015

PATIENT
  Age: 12 Month

DRUGS (4)
  1. SIROLIMUS [Suspect]
     Active Substance: SIROLIMUS
     Indication: Pulmonary vein stenosis
     Dosage: 1 MILLIGRAM/SQ. METER, QD
     Route: 065
  2. SIROLIMUS [Suspect]
     Active Substance: SIROLIMUS
     Indication: Condition aggravated
  3. IMATINIB [Suspect]
     Active Substance: IMATINIB
     Indication: Pulmonary vein stenosis
     Dosage: 340 MILLIGRAM/SQ. METER, QD
     Route: 065
  4. IMATINIB [Suspect]
     Active Substance: IMATINIB
     Indication: Condition aggravated

REACTIONS (5)
  - Pyrexia [Unknown]
  - Face oedema [Unknown]
  - Viral infection [Unknown]
  - Hypertriglyceridaemia [Recovered/Resolved]
  - Hypercholesterolaemia [Recovered/Resolved]
